FAERS Safety Report 5728214-9 (Version None)
Quarter: 2008Q2

REPORT INFORMATION
  Report Type: 
  Country: None (occurrence: None)
  Receive Date: 20080506
  Receipt Date: 20080428
  Transmission Date: 20081010
  Serious: Yes (Disabling, Other)
  Sender: FDA-Public Use
  Company Number: GB-BAYER-200810656BNE

PATIENT
  Age: 32 Year
  Sex: Female
  Weight: 46 kg

DRUGS (8)
  1. MICROGYNON [Interacting]
     Indication: CONTRACEPTION
     Dates: start: 20040101
  2. NIFEDIPINE [Suspect]
     Indication: INSOMNIA
     Dates: start: 20040101
  3. AMITRIPTLINE HCL [Interacting]
     Indication: DEPRESSION
     Dates: end: 20080204
  4. CALCICHEW [Interacting]
     Indication: OSTEOPENIA
     Dates: start: 19980101
  5. PROVIGIL [Interacting]
     Indication: FATIGUE
     Route: 048
     Dates: start: 20050201
  6. PROVIGIL [Interacting]
     Dates: start: 20061001, end: 20080204
  7. PROVIGIL [Interacting]
     Dates: start: 20060201, end: 20060301
  8. MULTI-VITAMIN [Concomitant]
     Indication: DRUG USE FOR UNKNOWN INDICATION

REACTIONS (9)
  - ARTHRALGIA [None]
  - DRUG INTERACTION [None]
  - ERYTHEMA [None]
  - LUPUS-LIKE SYNDROME [None]
  - MUSCULOSKELETAL STIFFNESS [None]
  - RASH [None]
  - RASH ERYTHEMATOUS [None]
  - SKIN LESION [None]
  - SWELLING [None]
